FAERS Safety Report 25653455 (Version 1)
Quarter: 2025Q3

REPORT INFORMATION
  Report Type: Spontaneous
  Country: US (occurrence: US)
  Receive Date: 20250807
  Receipt Date: 20250807
  Transmission Date: 20251021
  Serious: Yes (Other)
  Sender: CONCORD BIOTECH LTD
  Company Number: US-CBL-003304

PATIENT
  Age: 15 Year
  Sex: Male

DRUGS (2)
  1. MYCOPHENOLATE MOFETIL [Suspect]
     Active Substance: MYCOPHENOLATE MOFETIL
     Dosage: 600 MG/M^2 BSA/DOSE TWICE DAILY
     Route: 065
  2. INSULIN NOS [Suspect]
     Active Substance: INSULIN NOS
     Indication: Nephrotic syndrome
     Route: 065

REACTIONS (3)
  - Product use in unapproved indication [Unknown]
  - Nephrotic syndrome [Recovered/Resolved]
  - Disease recurrence [Recovered/Resolved]
